FAERS Safety Report 23538420 (Version 1)
Quarter: 2024Q1

REPORT INFORMATION
  Report Type: Report from Study
  Country: US (occurrence: US)
  Receive Date: 20240219
  Receipt Date: 20240219
  Transmission Date: 20240410
  Serious: Yes (Other)
  Sender: FDA-Public Use
  Company Number: US-ABBVIE-5508954

PATIENT
  Sex: Female

DRUGS (3)
  1. HUMIRA [Suspect]
     Active Substance: ADALIMUMAB
     Indication: Psoriatic arthropathy
     Dosage: FORM STRENGTH: 40 MILLIGRAM.
     Route: 058
     Dates: start: 20160101
  2. HUMIRA [Suspect]
     Active Substance: ADALIMUMAB
     Dosage: FORM STRENGTH: 40 MILLIGRAM.
     Route: 058
  3. OTEZLA [Suspect]
     Active Substance: APREMILAST
     Indication: Product used for unknown indication
     Route: 065

REACTIONS (12)
  - Surgery [Unknown]
  - Psoriasis [Recovering/Resolving]
  - Knee operation [Unknown]
  - Surgical failure [Unknown]
  - Drug ineffective [Unknown]
  - Knee operation [Recovered/Resolved]
  - Nail disorder [Recovering/Resolving]
  - Skin injury [Unknown]
  - Blister [Unknown]
  - Nail psoriasis [Unknown]
  - Joint swelling [Recovering/Resolving]
  - Gait disturbance [Recovering/Resolving]

NARRATIVE: CASE EVENT DATE: 20230101
